FAERS Safety Report 23877171 (Version 2)
Quarter: 2024Q3

REPORT INFORMATION
  Report Type: Spontaneous
  Country: US (occurrence: US)
  Receive Date: 20240521
  Receipt Date: 20240726
  Transmission Date: 20241017
  Serious: No
  Sender: ARGENX BVBA
  Company Number: US-ARGENX-2024-ARGX-US003350

PATIENT

DRUGS (1)
  1. VYVGART [Suspect]
     Active Substance: EFGARTIGIMOD ALFA-FCAB
     Indication: Myasthenia gravis
     Dosage: 4 WEEKS ON 2 WEEKS OFF
     Route: 042
     Dates: start: 20220712

REACTIONS (1)
  - Myasthenia gravis [Not Recovered/Not Resolved]
